FAERS Safety Report 4618084-4 (Version None)
Quarter: 2005Q2

REPORT INFORMATION
  Report Type: 
  Country: None (occurrence: None)
  Receive Date: 20050316
  Receipt Date: 20050119
  Transmission Date: 20051028
  Serious: Yes (Hospitalization)
  Sender: FDA-Public Use
  Company Number: S05-USA-00318-01

PATIENT
  Age: 43 Year
  Sex: Female
  Weight: 86.637 kg

DRUGS (7)
  1. LEXAPRO [Suspect]
     Indication: DEPRESSION
     Dosage: 10 MG QD PO
     Route: 048
     Dates: start: 20040201, end: 20050116
  2. LEXAPRO [Suspect]
     Indication: GENERALISED ANXIETY DISORDER
     Dosage: 10 MG QD PO
     Route: 048
     Dates: start: 20040201, end: 20050116
  3. LORAZEPAM [Concomitant]
  4. ALLEGRA [Concomitant]
  5. HYDROCODONE BITARTRATE [Concomitant]
  6. VITAMIN B-12 [Concomitant]
  7. ASCORBIC ACID [Concomitant]

REACTIONS (4)
  - ABDOMINAL PAIN [None]
  - FLATULENCE [None]
  - NAUSEA [None]
  - PANCREATITIS ACUTE [None]
